FAERS Safety Report 7095455-0 (Version None)
Quarter: 2010Q4

REPORT INFORMATION
  Report Type: 
  Country: None (occurrence: None)
  Receive Date: 20101111
  Receipt Date: 20101102
  Transmission Date: 20110411
  Serious: Yes (Hospitalization)
  Sender: FDA-Public Use
  Company Number: FR-ASTRAZENECA-2010SE52405

PATIENT
  Age: 32501 Day
  Sex: Male

DRUGS (5)
  1. ZESTRIL [Suspect]
     Indication: HYPERTENSION
     Route: 048
     Dates: end: 20100318
  2. ALDACTONE [Suspect]
     Route: 048
     Dates: end: 20100310
  3. ALDACTONE [Suspect]
     Route: 048
     Dates: start: 20100311
  4. CALCIPARINE [Suspect]
     Route: 058
     Dates: end: 20100314
  5. DIAMICRON [Concomitant]

REACTIONS (2)
  - CONDITION AGGRAVATED [None]
  - RENAL FAILURE ACUTE [None]
